FAERS Safety Report 7713133-9 (Version None)
Quarter: 2011Q3

REPORT INFORMATION
  Report Type: 
  Country: None (occurrence: None)
  Receive Date: 20110826
  Receipt Date: 20110822
  Transmission Date: 20111222
  Serious: Yes (Life-Threatening, Hospitalization)
  Sender: FDA-Public Use
  Company Number: PHFR2011GB03013

PATIENT
  Age: 55 Year
  Sex: Male

DRUGS (4)
  1. AMISULPRIDE [Suspect]
     Dosage: 200 MG, BID
  2. CLOZAPINE [Suspect]
     Indication: SCHIZOPHRENIA
     Dosage: UNK
     Dates: start: 20000101, end: 20060101
  3. CLOZAPINE [Suspect]
     Indication: SCHIZOPHRENIA
     Dosage: 450 MG, QD
     Dates: start: 20070101, end: 20101119
  4. CLOZAPINE [Suspect]
     Dates: start: 20070101, end: 20101119

REACTIONS (9)
  - CARDIOMYOPATHY [None]
  - PNEUMONIA [None]
  - PSYCHOTIC DISORDER [None]
  - SEPSIS [None]
  - MULTI-ORGAN FAILURE [None]
  - CARDIOGENIC SHOCK [None]
  - LOWER RESPIRATORY TRACT INFECTION [None]
  - LEFT VENTRICULAR DYSFUNCTION [None]
  - WITHDRAWAL SYNDROME [None]
